FAERS Safety Report 11170673 (Version 1)
Quarter: 2015Q2

REPORT INFORMATION
  Report Type: Spontaneous
  Country: US (occurrence: US)
  Receive Date: 20150608
  Receipt Date: 20150608
  Transmission Date: 20150821
  Serious: Yes (Hospitalization)
  Sender: FDA-Public Use
  Company Number: US-JNJFOC-20150519040

PATIENT
  Sex: Female
  Weight: 158.76 kg

DRUGS (1)
  1. DURAGESIC [Suspect]
     Active Substance: FENTANYL
     Indication: PAIN
     Route: 062

REACTIONS (4)
  - Product quality issue [Unknown]
  - Wrong technique in drug usage process [Unknown]
  - Fungal infection [Unknown]
  - Hallucination [Unknown]
